FAERS Safety Report 8168796-3 (Version None)
Quarter: 2012Q1

REPORT INFORMATION
  Report Type: 
  Country: None (occurrence: None)
  Receive Date: 20120227
  Receipt Date: 20120222
  Transmission Date: 20120608
  Serious: Yes (Other)
  Sender: FDA-Public Use
  Company Number: US-PFIZER INC-2012009949

PATIENT
  Sex: Male
  Weight: 97.506 kg

DRUGS (22)
  1. CARVEDILOL [Concomitant]
     Dosage: UNK
  2. GABAPENTIN [Concomitant]
     Dosage: UNK
  3. HYDROCHLOROTHIAZIDE [Concomitant]
     Dosage: UNK
  4. SPIRIVA [Concomitant]
     Dosage: UNK
  5. ACETAMINOPHEN [Concomitant]
     Dosage: UNK
  6. LOVASTATIN [Concomitant]
     Dosage: UNK
  7. NICOTROL [Suspect]
     Indication: SMOKING CESSATION THERAPY
     Dosage: UNK
     Route: 045
     Dates: start: 20020101
  8. ASPIRIN [Concomitant]
     Dosage: UNK
  9. HYDROCODONE [Concomitant]
     Dosage: UNK
  10. VERAMYST [Concomitant]
     Dosage: UNK
  11. NAPROXEN (ALEVE) [Concomitant]
     Dosage: UNK
  12. DIPHENHYDRAMINE [Concomitant]
     Dosage: UNK
  13. FLEXERIL [Concomitant]
     Dosage: UNK
  14. PROVENTIL-HFA [Concomitant]
     Dosage: UNK
  15. PLAVIX [Concomitant]
     Dosage: UNK
  16. DIGOXIN [Concomitant]
     Dosage: UNK
  17. ALTACE [Concomitant]
     Dosage: UNK
  18. NOVOLOG [Concomitant]
     Dosage: UNK
  19. MULTI-VITAMINS [Concomitant]
     Dosage: UNK
  20. VITAMIN D2 [Concomitant]
     Dosage: UNK
  21. NITROLINGUAL [Concomitant]
     Dosage: UNK
  22. LANTUS [Concomitant]
     Dosage: UNK

REACTIONS (8)
  - INTENTIONAL DRUG MISUSE [None]
  - RHINORRHOEA [None]
  - CHOKING [None]
  - RETCHING [None]
  - DIABETES MELLITUS [None]
  - CEREBROVASCULAR ACCIDENT [None]
  - LUNG NEOPLASM MALIGNANT [None]
  - LEG AMPUTATION [None]
